FAERS Safety Report 5416412-3 (Version None)
Quarter: 2007Q3

REPORT INFORMATION
  Report Type: 
  Country: None (occurrence: None)
  Receive Date: 20070816
  Receipt Date: 20061218
  Transmission Date: 20080115
  Serious: No
  Sender: FDA-Public Use
  Company Number: US-KINGPHARMUSA00001-K200601608

PATIENT

DRUGS (1)
  1. BREVITAL SODIUM INJ [Suspect]
     Route: 042

REACTIONS (1)
  - EXTRAVASATION [None]
